FAERS Safety Report 5126095-8 (Version None)
Quarter: 2006Q4

REPORT INFORMATION
  Report Type: 
  Country: None (occurrence: None)
  Receive Date: 20061012
  Receipt Date: 20061003
  Transmission Date: 20070319
  Serious: Yes (Life-Threatening, Hospitalization)
  Sender: FDA-Public Use
  Company Number: JP-JNJFOC-20060905237

PATIENT
  Sex: Male

DRUGS (8)
  1. RISPERDAL [Suspect]
     Indication: DEMENTIA
     Route: 048
  2. FAMOTIDINE [Concomitant]
     Route: 048
  3. FAMOTIDINE [Concomitant]
     Route: 048
  4. TIAPRIDE HYDROCHLORIDE [Concomitant]
     Route: 048
  5. TIAPRIDE HYDROCHLORIDE [Concomitant]
     Indication: DEMENTIA
     Route: 048
  6. ZOPICLONE [Concomitant]
     Indication: INSOMNIA
     Route: 048
  7. ASPIRIN [Concomitant]
     Route: 048
  8. NITOROL [Concomitant]

REACTIONS (2)
  - RENAL FAILURE ACUTE [None]
  - RHABDOMYOLYSIS [None]
